FAERS Safety Report 10069712 (Version 1)
Quarter: 2014Q2

REPORT INFORMATION
  Report Type: Spontaneous
  Country: US (occurrence: None)
  Receive Date: 20140409
  Receipt Date: 20140409
  Transmission Date: 20141212
  Serious: No
  Sender: FDA-Public Use
  Company Number: None

PATIENT
  Age: 59 Year
  Sex: Female
  Weight: 77.57 kg

DRUGS (1)
  1. DONEPEZIL HYDROCHLORIDE 10 MG [Suspect]
     Indication: MEMORY IMPAIRMENT
     Dosage: 1 PILL, ONCE DAILY, TAKEN BY MOUTH
     Route: 048

REACTIONS (2)
  - Nausea [None]
  - Vomiting [None]
